FAERS Safety Report 5683921-1 (Version None)
Quarter: 2008Q1

REPORT INFORMATION
  Report Type: 
  Country: None (occurrence: None)
  Receive Date: 20080328
  Receipt Date: 20080328
  Transmission Date: 20080703
  Serious: No
  Sender: FDA-Public Use
  Company Number: None

PATIENT
  Age: 2 Year
  Sex: Female
  Weight: 10.8 kg

DRUGS (2)
  1. HEPARIN [Suspect]
     Indication: INDWELLING CATHETER MANAGEMENT
     Dosage: 3 ML IV
     Route: 042
     Dates: start: 20080320
  2. HEPARIN [Suspect]
     Indication: INDWELLING CATHETER MANAGEMENT
     Dosage: 3 ML IV
     Route: 042
     Dates: start: 20080324

REACTIONS (1)
  - DRUG HYPERSENSITIVITY [None]
